FAERS Safety Report 20787630 (Version 1)
Quarter: 2022Q2

REPORT INFORMATION
  Report Type: Spontaneous
  Country: CN (occurrence: CN)
  Receive Date: 20220505
  Receipt Date: 20220505
  Transmission Date: 20220721
  Serious: Yes (Other)
  Sender: FDA-Public Use
  Company Number: CN-SUN PHARMACEUTICAL INDUSTRIES LTD-2022R1-334785

PATIENT
  Age: 45 Year
  Sex: Male

DRUGS (3)
  1. HYDROXYCHLOROQUINE [Suspect]
     Active Substance: HYDROXYCHLOROQUINE
     Indication: Dermatitis atopic
     Dosage: 0.2 GRAM, DAILY
     Route: 048
  2. EBASTINE [Suspect]
     Active Substance: EBASTINE
     Indication: Dermatitis atopic
     Dosage: 10 MILLIGRAM, DAILY
     Route: 048
  3. CYCLOSPORINE [Suspect]
     Active Substance: CYCLOSPORINE
     Indication: Dermatitis atopic
     Dosage: 75 MILLIGRAM, DAILY
     Route: 048

REACTIONS (1)
  - Therapy non-responder [Unknown]
